FAERS Safety Report 25372476 (Version 1)
Quarter: 2025Q2

REPORT INFORMATION
  Report Type: Spontaneous
  Country: DE (occurrence: DE)
  Receive Date: 20250529
  Receipt Date: 20250529
  Transmission Date: 20250717
  Serious: Yes (Life-Threatening, Hospitalization, Other)
  Sender: MERCK SHARP & DOHME LLC
  Company Number: DE-CUBIST PHARMACEUTICALS, INC.-2008S1000037

PATIENT
  Age: 52 Year
  Sex: Male
  Weight: 80 kg

DRUGS (21)
  1. CUBICIN [Suspect]
     Active Substance: DAPTOMYCIN
     Indication: Endocarditis staphylococcal
     Dosage: DOSE DESCRIPTION : 350 MG, QD DAILY DOSE : 350 MILLIGRAM
     Route: 042
     Dates: start: 20071219, end: 20071229
  2. CUBICIN [Suspect]
     Active Substance: DAPTOMYCIN
     Indication: Endocarditis staphylococcal
     Route: 042
     Dates: start: 20071219, end: 20071229
  3. FILGRASTIM [Suspect]
     Active Substance: FILGRASTIM
     Indication: Granulocyte count decreased
     Dosage: DOSE DESCRIPTION : UNK UNK, QD
     Dates: start: 20071231, end: 20080101
  4. MARCUMAR [Concomitant]
     Active Substance: PHENPROCOUMON
     Dates: start: 20071205
  5. MARCUMAR [Concomitant]
     Active Substance: PHENPROCOUMON
     Dosage: DOSE DESCRIPTION : UNK UNK, QD
     Dates: start: 20070905
  6. POTASSIUM [Concomitant]
     Active Substance: POTASSIUM
     Dosage: DOSE DESCRIPTION : UNK UNK, QD
  7. OXAZEPAM [Concomitant]
     Active Substance: OXAZEPAM
     Dosage: DOSE DESCRIPTION : UNK UNK, QD
  8. UNSPECIFIED INGREDIENT [Concomitant]
     Active Substance: UNSPECIFIED INGREDIENT
     Indication: Hypertension
  9. GENTAMICIN [Concomitant]
     Active Substance: GENTAMICIN
     Dosage: DOSE DESCRIPTION : UNK UNK, QD
     Dates: start: 20071204, end: 20071227
  10. AMPICILLIN [Concomitant]
     Active Substance: AMPICILLIN
     Dosage: DOSE DESCRIPTION : UNK UNK, QD
  11. PIRETANIDE [Concomitant]
     Active Substance: PIRETANIDE
  12. HYDROCORTISONE [Concomitant]
     Active Substance: HYDROCORTISONE
     Dosage: DOSE DESCRIPTION : UNK UNK, QD
  13. METAMIZOLE SODIUM [Concomitant]
     Active Substance: METAMIZOLE SODIUM
     Dates: end: 20071217
  14. CEFTRIAXONE SODIUM [Concomitant]
     Active Substance: CEFTRIAXONE SODIUM
     Dosage: DOSE DESCRIPTION : UNK UNK, QD
  15. FLUCLOXACILLIN [Concomitant]
     Active Substance: FLUCLOXACILLIN
     Dosage: DOSE DESCRIPTION : UNK UNK, QD
  16. INSULIN NOS [Concomitant]
     Active Substance: INSULIN NOS
     Dates: end: 20071223
  17. TRAMADOL [Concomitant]
     Active Substance: TRAMADOL
     Dosage: DOSE DESCRIPTION : UNK UNK, QD
     Dates: start: 20071218, end: 20071218
  18. VANCOMYCIN [Concomitant]
     Active Substance: VANCOMYCIN
     Dosage: DOSE DESCRIPTION : UNK UNK, QD
     Dates: end: 20071218
  19. RIFAMPIN [Concomitant]
     Active Substance: RIFAMPIN
     Dosage: DOSE DESCRIPTION : UNK UNK, QD
     Dates: end: 20071218
  20. CLEMASTINE [Concomitant]
     Active Substance: CLEMASTINE
     Dosage: DOSE DESCRIPTION : UNK UNK, QD
  21. PANTOPRAZOLE [Concomitant]
     Active Substance: PANTOPRAZOLE
     Dosage: DOSE DESCRIPTION : UNK UNK, QD

REACTIONS (9)
  - Agranulocytosis [Recovered/Resolved]
  - White blood cell count increased [Recovered/Resolved]
  - Granulocyte count increased [Recovered/Resolved]
  - Rash [Recovered/Resolved]
  - Cardiac valve disease [Recovered/Resolved]
  - Renal failure [Recovered/Resolved]
  - Abdominal discomfort [Recovered/Resolved]
  - Hypertension [Recovered/Resolved]
  - Sleep disorder [Recovered/Resolved]

NARRATIVE: CASE EVENT DATE: 20071229
